FAERS Safety Report 14321177 (Version 16)
Quarter: 2021Q2

REPORT INFORMATION
  Report Type: Spontaneous
  Country: ES (occurrence: ES)
  Receive Date: 20171223
  Receipt Date: 20210409
  Transmission Date: 20210716
  Serious: Yes (Hospitalization, Other)
  Sender: FDA-Public Use
  Company Number: ES-AUROBINDO-AUR-APL-2017-46608

PATIENT
  Age: 83 Year
  Sex: Female
  Weight: 62 kg

DRUGS (2)
  1. MIRTAZAPINE FILM?COATED TABLET [Suspect]
     Active Substance: MIRTAZAPINE
     Indication: MAJOR DEPRESSION
     Dosage: 30 MILLIGRAM, FOUR TIMES/DAY (6 HOUR)
     Route: 048
     Dates: start: 20160610, end: 20160812
  2. MIRTAZAPINE FILM?COATED TABLET [Suspect]
     Active Substance: MIRTAZAPINE
     Indication: DEPRESSION
     Dosage: 30 MILLIGRAM, FOUR TIMES/DAY (6 HOUR)
     Route: 048
     Dates: start: 20160610, end: 201606

REACTIONS (6)
  - Pancreatitis necrotising [Recovering/Resolving]
  - Pancreatitis [Recovering/Resolving]
  - Off label use [Recovered/Resolved]
  - Prescribed overdose [Recovered/Resolved]
  - Dose calculation error [Recovered/Resolved]
  - Pancreatitis necrotising [Recovered/Resolved]

NARRATIVE: CASE EVENT DATE: 20160610
